FAERS Safety Report 11025491 (Version 1)
Quarter: 2015Q2

REPORT INFORMATION
  Report Type: Spontaneous
  Country: FR (occurrence: FR)
  Receive Date: 20150414
  Receipt Date: 20150414
  Transmission Date: 20150821
  Serious: Yes (Other)
  Sender: FDA-Public Use
  Company Number: FR-ASTELLAS-2015US012009

PATIENT
  Age: 64 Year
  Sex: Male

DRUGS (3)
  1. AMBISOME [Suspect]
     Active Substance: AMPHOTERICIN B
     Indication: HISTIOCYTOSIS HAEMATOPHAGIC
  2. AMBISOME [Suspect]
     Active Substance: AMPHOTERICIN B
     Indication: VISCERAL LEISHMANIASIS
     Route: 042
  3. ETOPOSIDE. [Concomitant]
     Active Substance: ETOPOSIDE
     Indication: PRODUCT USED FOR UNKNOWN INDICATION
     Dosage: UNK UNK, UNKNOWN FREQ.
     Route: 065

REACTIONS (2)
  - Drug ineffective [Unknown]
  - Off label use [Unknown]
